FAERS Safety Report 22346069 (Version 3)
Quarter: 2025Q1

REPORT INFORMATION
  Report Type: Spontaneous
  Country: JP (occurrence: JP)
  Receive Date: 20230519
  Receipt Date: 20250103
  Transmission Date: 20250409
  Serious: Yes (Other)
  Sender: ASCEND THERAPEUTICS US, LLC
  Company Number: JP-Ascend Therapeutics US, LLC-2141784

PATIENT

DRUGS (2)
  1. ESTROGEL [Suspect]
     Active Substance: ESTRADIOL
     Indication: Product used for unknown indication
  2. ESTROGEL [Suspect]
     Active Substance: ESTRADIOL

REACTIONS (1)
  - Vertebrobasilar artery dissection [Unknown]
